FAERS Safety Report 9104476 (Version 3)
Quarter: 2014Q2

REPORT INFORMATION
  Report Type: Spontaneous
  Country: US (occurrence: US)
  Receive Date: 20130220
  Receipt Date: 20140228
  Transmission Date: 20141212
  Serious: Yes (Other)
  Sender: FDA-Public Use
  Company Number: US-ROCHE-1189637

PATIENT
  Sex: Male

DRUGS (1)
  1. AVASTIN [Suspect]
     Indication: AGE-RELATED MACULAR DEGENERATION
     Route: 065

REACTIONS (20)
  - Ocular hyperaemia [Unknown]
  - Eye discharge [Unknown]
  - Eye pruritus [Unknown]
  - Blindness unilateral [Unknown]
  - Retinal tear [Unknown]
  - Lacrimation increased [Unknown]
  - Feeling abnormal [Unknown]
  - Fatigue [Unknown]
  - Confusional state [Unknown]
  - Dizziness [Unknown]
  - Hypersomnia [Unknown]
  - Eye disorder [Unknown]
  - Headache [Unknown]
  - Cognitive disorder [Unknown]
  - Intraocular pressure increased [Unknown]
  - Inflammation [Unknown]
  - Nausea [Unknown]
  - Thrombocytopenia [Unknown]
  - Haemorrhage [Unknown]
  - Jaw disorder [Unknown]
